FAERS Safety Report 19805994 (Version 1)
Quarter: 2021Q3

REPORT INFORMATION
  Report Type: Spontaneous
  Country: CA (occurrence: CA)
  Receive Date: 20210908
  Receipt Date: 20210908
  Transmission Date: 20211014
  Serious: Yes (Other)
  Sender: FDA-Public Use
  Company Number: CA-SAMSUNG BIOEPIS-SB-2021-21182

PATIENT
  Age: 69 Year
  Sex: Female

DRUGS (1)
  1. INFLIXIMAB [Suspect]
     Active Substance: INFLIXIMAB
     Indication: CROHN^S DISEASE
     Route: 042

REACTIONS (10)
  - Nausea [Recovered/Resolved]
  - Condition aggravated [Recovered/Resolved]
  - Cataract [Recovered/Resolved]
  - Eye inflammation [Recovered/Resolved]
  - Off label use [Recovered/Resolved]
  - Mydriasis [Recovered/Resolved]
  - Photophobia [Recovered/Resolved]
  - Catheter site infection [Recovered/Resolved]
  - Intentional product use issue [Recovered/Resolved]
  - Hot flush [Recovered/Resolved]
